FAERS Safety Report 4828294-9 (Version None)
Quarter: 2005Q4

REPORT INFORMATION
  Report Type: 
  Country: None (occurrence: None)
  Receive Date: 20051114
  Receipt Date: 20051114
  Transmission Date: 20060501
  Serious: Yes (Hospitalization)
  Sender: FDA-Public Use
  Company Number: None

PATIENT
  Sex: Male
  Weight: 95 kg

DRUGS (11)
  1. IRESSA [Suspect]
     Indication: NEOPLASM MALIGNANT
     Dosage: 250 MG DAILY PO
     Route: 048
     Dates: start: 20050829, end: 20051006
  2. ASPIRIN [Suspect]
     Indication: ARTERIOSCLEROSIS CORONARY ARTERY
     Dosage: 81 MG DAILY PO
     Route: 048
  3. ZOCOR [Suspect]
     Indication: HYPERLIPIDAEMIA
     Dosage: 20 MG DAILY PO
     Route: 048
  4. PLAVIX [Suspect]
     Indication: ATRIAL FIBRILLATION
     Dosage: 75 MG DAILY PO
     Route: 048
  5. NEXIUM [Suspect]
     Indication: GASTROOESOPHAGEAL REFLUX DISEASE
     Dosage: 40 MG DAILY PO
     Route: 048
  6. BETAPACE [Suspect]
     Indication: HYPERTENSION
     Dosage: 80 MG BID PO
     Route: 048
  7. DURAGESIC-100 [Suspect]
     Indication: PAIN
     Dosage: 100 MCG Q72HRS DERM
     Route: 062
  8. METHADONE HCL [Suspect]
     Indication: PAIN
     Dosage: 15 MG PRN SL
     Route: 060
  9. RITALIN [Suspect]
     Indication: DEPRESSION
     Dosage: 10 MG BID PO
     Route: 048
  10. REMERON [Suspect]
     Indication: ANTIDEPRESSANT THERAPY
     Dosage: 15 MG DAILY PO
     Route: 048
  11. ZYPREXA [Suspect]
     Dosage: 5 MG BID SL
     Route: 060

REACTIONS (4)
  - DEHYDRATION [None]
  - DIARRHOEA [None]
  - HYPOTENSION [None]
  - PNEUMONIA ASPIRATION [None]
